FAERS Safety Report 7319508 (Version 2)
Quarter: 2014Q1

REPORT INFORMATION
  Report Type: Spontaneous
  Country: US (occurrence: None)
  Receive Date: 20100224
  Receipt Date: 20140212
  Transmission Date: 20141002
  Serious: Yes (Hospitalization, Other)
  Sender: FDA-Public Use
  Company Number: 2010S1000961

PATIENT
  Age: 56 Year
  Sex: Female
  Weight: 69.4 kg

DRUGS (8)
  1. FLEET PHOSPHO-SODA [Suspect]
     Indication: COLONOSCOPY
     Dosage: 45 ML; X1;PO
     Route: 048
     Dates: start: 20040422, end: 20040422
  2. FLEET ENEMA /00129701/ [Concomitant]
     Route: 054
     Dates: start: 20040423, end: 20040423
  3. PREMARIN [Concomitant]
  4. PRILOSEC [Concomitant]
  5. AMBIEN [Concomitant]
  6. ZOVIRAX [Concomitant]
  7. VIOXX [Concomitant]
  8. ZESTORETIC  /00587301/ [Concomitant]

REACTIONS (10)
  - Nausea [None]
  - Vomiting [None]
  - Diarrhoea [None]
  - Asthenia [None]
  - Sinusitis [None]
  - Bronchitis [None]
  - Malaise [None]
  - Renal failure acute [None]
  - Renal tubular necrosis [None]
  - Tubulointerstitial nephritis [None]
